FAERS Safety Report 7969384-1 (Version None)
Quarter: 2011Q4

REPORT INFORMATION
  Report Type: 
  Country: None (occurrence: None)
  Receive Date: 20111211
  Receipt Date: 20070824
  Transmission Date: 20120403
  Serious: Yes (Other)
  Sender: FDA-Public Use
  Company Number: PHHY2007MX011440

PATIENT
  Sex: Female

DRUGS (1)
  1. DIOVAN [Suspect]
     Dosage: 1 DF, UNK
     Route: 048
     Dates: start: 20070601, end: 20070701

REACTIONS (2)
  - LACRIMAL DISORDER [None]
  - VIITH NERVE PARALYSIS [None]
